FAERS Safety Report 15409987 (Version 3)
Quarter: 2019Q1

REPORT INFORMATION
  Report Type: Report from Study
  Country: US (occurrence: US)
  Receive Date: 20180920
  Receipt Date: 20190322
  Transmission Date: 20190417
  Serious: Yes (Other)
  Sender: FDA-Public Use
  Company Number: US-ROCHE-2185164

PATIENT
  Age: 69 Year
  Sex: Male
  Weight: 112.59 kg

DRUGS (10)
  1. VITAMIN D3 [Concomitant]
     Active Substance: CHOLECALCIFEROL
     Indication: PRIMARY PROGRESSIVE MULTIPLE SCLEROSIS
     Dosage: ONGOING; YES
     Route: 065
  2. GABAPENTIN. [Concomitant]
     Active Substance: GABAPENTIN
     Indication: BACK PAIN
     Route: 065
  3. IBUPROFEN. [Concomitant]
     Active Substance: IBUPROFEN
     Indication: PAIN
     Dosage: ONGOING: UNKNOWN; TAKES AS NEEDED
     Route: 065
  4. OCREVUS [Suspect]
     Active Substance: OCRELIZUMAB
     Indication: PRIMARY PROGRESSIVE MULTIPLE SCLEROSIS
     Dosage: OTHER HALF DOSE RECEIVED ON 01/FEB/2018
     Route: 065
     Dates: start: 20180118
  5. HYDROCODONE BITARTRATE/ACETAMINOPHEN [Concomitant]
     Active Substance: ACETAMINOPHEN\HYDROCODONE BITARTRATE
     Indication: BACK PAIN
  6. TESTOSTERONE PELLET [Concomitant]
     Active Substance: TESTOSTERONE
     Indication: BLOOD TESTOSTERONE DECREASED
     Dosage: ONGOING: YES
     Route: 065
  7. BENADRYL [Suspect]
     Active Substance: DIPHENHYDRAMINE HYDROCHLORIDE
     Indication: PRODUCT USED FOR UNKNOWN INDICATION
     Dosage: ONGOING: UNKNOWN
     Route: 042
  8. ARMOUR THYROID [Concomitant]
     Active Substance: THYROID, PORCINE
     Dosage: ONGOING YES
     Route: 065
  9. VITAMIN D3 [Concomitant]
     Active Substance: CHOLECALCIFEROL
     Indication: VITAMIN D DEFICIENCY
  10. OCREVUS [Suspect]
     Active Substance: OCRELIZUMAB
     Dosage: FULL DOSE; 18/FEB/2019 SECOND FULL DOSE
     Route: 065
     Dates: start: 20180801

REACTIONS (18)
  - Somnolence [Unknown]
  - Lower respiratory tract congestion [Recovered/Resolved]
  - Swelling face [Not Recovered/Not Resolved]
  - Periorbital swelling [Not Recovered/Not Resolved]
  - Mean cell haemoglobin increased [Unknown]
  - Ear congestion [Recovered/Resolved]
  - Upper respiratory tract infection [Recovered/Resolved]
  - Seizure [Recovered/Resolved]
  - Middle ear effusion [Not Recovered/Not Resolved]
  - Cough [Recovered/Resolved]
  - Ocular hyperaemia [Not Recovered/Not Resolved]
  - Impaired driving ability [Recovered/Resolved]
  - Fatigue [Recovered/Resolved]
  - Swelling face [Not Recovered/Not Resolved]
  - Nipple pain [Not Recovered/Not Resolved]
  - Hypoacusis [Recovered/Resolved]
  - Hyperaesthesia [Not Recovered/Not Resolved]
  - Heart rate decreased [Unknown]

NARRATIVE: CASE EVENT DATE: 20180118
